FAERS Safety Report 17583667 (Version 1)
Quarter: 2020Q1

REPORT INFORMATION
  Report Type: Spontaneous
  Country: US (occurrence: US)
  Receive Date: 20200326
  Receipt Date: 20200326
  Transmission Date: 20200409
  Serious: Yes (Other)
  Sender: FDA-Public Use
  Company Number: US-ROCHE-2568799

PATIENT
  Sex: Female

DRUGS (3)
  1. OCREVUS [Suspect]
     Active Substance: OCRELIZUMAB
     Indication: MULTIPLE SCLEROSIS
     Route: 065
  2. ADDERALL [Concomitant]
     Active Substance: AMPHETAMINE ASPARTATE\AMPHETAMINE SULFATE\DEXTROAMPHETAMINE SACCHARATE\DEXTROAMPHETAMINE SULFATE
  3. PROVIGIL [Concomitant]
     Active Substance: MODAFINIL

REACTIONS (11)
  - Blindness [Unknown]
  - Hypertension [Unknown]
  - Influenza [Unknown]
  - Disturbance in attention [Unknown]
  - Cough [Unknown]
  - Ear infection [Unknown]
  - Heart rate increased [Unknown]
  - Malaise [Unknown]
  - Asthenia [Unknown]
  - Pharyngitis streptococcal [Unknown]
  - Respiratory tract infection [Unknown]
